FAERS Safety Report 7897651-9 (Version None)
Quarter: 2011Q4

REPORT INFORMATION
  Report Type: 
  Country: None (occurrence: None)
  Receive Date: 20111107
  Receipt Date: 20111101
  Transmission Date: 20120403
  Serious: Yes (Hospitalization)
  Sender: FDA-Public Use
  Company Number: CA-PFIZER INC-2011267261

PATIENT
  Age: 36 Year
  Sex: Male

DRUGS (4)
  1. IMMUNOGLOBULINS [Concomitant]
     Indication: LICHEN MYXOEDEMATOSUS
     Dosage: UNK
  2. THALOMID [Suspect]
     Indication: LICHEN MYXOEDEMATOSUS
     Dosage: 100 MG, 1X/DAY
     Route: 048
     Dates: start: 20110606, end: 20110826
  3. REVATIO [Suspect]
     Indication: PULMONARY HYPERTENSION
     Dosage: 20 MG, 3X/DAY
     Dates: start: 20110810, end: 20110826
  4. THALOMID [Suspect]
     Indication: MULTIPLE MYELOMA
     Dosage: 100 MG, 1X/DAY
     Route: 048
     Dates: start: 20110606, end: 20110826

REACTIONS (1)
  - PULMONARY OEDEMA [None]
